FAERS Safety Report 23110458 (Version 1)
Quarter: 2023Q4

REPORT INFORMATION
  Report Type: Spontaneous
  Country: US (occurrence: None)
  Receive Date: 20231024
  Receipt Date: 20231024
  Transmission Date: 20240110
  Serious: Yes (Hospitalization)
  Sender: FDA-Public Use
  Company Number: None

PATIENT
  Age: 78 Year
  Sex: Male
  Weight: 89.3 kg

DRUGS (1)
  1. TRAMADOL HYDROCHLORIDE [Suspect]
     Active Substance: TRAMADOL HYDROCHLORIDE
     Route: 048
     Dates: end: 20220205

REACTIONS (9)
  - Confusional state [None]
  - Fall [None]
  - Cerebral atrophy [None]
  - Hydrocephalus [None]
  - Urinary incontinence [None]
  - Anal incontinence [None]
  - Urticaria [None]
  - Rash [None]
  - Gait disturbance [None]

NARRATIVE: CASE EVENT DATE: 20220205
